FAERS Safety Report 5938580-7 (Version None)
Quarter: 2008Q4

REPORT INFORMATION
  Report Type: 
  Country: None (occurrence: None)
  Receive Date: 20081103
  Receipt Date: 20081029
  Transmission Date: 20090506
  Serious: Yes (Death, Hospitalization)
  Sender: FDA-Public Use
  Company Number: PHHY2008JP10585

PATIENT
  Sex: Female
  Weight: 39 kg

DRUGS (4)
  1. TEGRETOL [Suspect]
     Indication: EPILEPSY
     Dosage: UNK
     Route: 048
     Dates: start: 20071115, end: 20080118
  2. PREDONINE [Concomitant]
     Dosage: 25 MG DAILY
     Route: 048
     Dates: start: 20080131
  3. PREDONINE [Concomitant]
     Dosage: 40MG DAILY
     Route: 048
     Dates: start: 20080201
  4. PREDONINE [Concomitant]
     Dosage: 20MG DAILY
     Route: 048
     Dates: start: 20080307

REACTIONS (6)
  - DRUG RASH WITH EOSINOPHILIA AND SYSTEMIC SYMPTOMS [None]
  - EOSINOPHILIA [None]
  - ERYTHEMA [None]
  - GINGIVAL EROSION [None]
  - PIGMENTATION DISORDER [None]
  - PNEUMONIA [None]
